FAERS Safety Report 15752337 (Version 1)
Quarter: 2018Q4

REPORT INFORMATION
  Report Type: Spontaneous
  Country: AR (occurrence: AR)
  Receive Date: 20181221
  Receipt Date: 20181221
  Transmission Date: 20190205
  Serious: Yes (Death)
  Sender: FDA-Public Use
  Company Number: AR-ALLERGAN-1858927US

PATIENT

DRUGS (2)
  1. CEFTAZIDIME;AVIBACTAM - BP [Suspect]
     Active Substance: AVIBACTAM SODIUM\CEFTAZIDIME
     Indication: PNEUMONIA KLEBSIELLA
     Dosage: UNK
     Route: 065
  2. AMIKACIN SULFATE. [Suspect]
     Active Substance: AMIKACIN SULFATE
     Indication: PNEUMONIA KLEBSIELLA
     Dosage: UNK
     Route: 065

REACTIONS (1)
  - Death [Fatal]
